FAERS Safety Report 6199171-9 (Version None)
Quarter: 2009Q2

REPORT INFORMATION
  Report Type: 
  Country: None (occurrence: None)
  Receive Date: 20090522
  Receipt Date: 20090319
  Transmission Date: 20091009
  Serious: No
  Sender: FDA-Public Use
  Company Number: A0774814A

PATIENT

DRUGS (1)
  1. VERAMYST [Suspect]
     Route: 065

REACTIONS (1)
  - ILL-DEFINED DISORDER [None]
